FAERS Safety Report 7916984-0 (Version None)
Quarter: 2011Q4

REPORT INFORMATION
  Report Type: 
  Country: None (occurrence: None)
  Receive Date: 20111116
  Receipt Date: 20111116
  Transmission Date: 20120403
  Serious: Yes (Other)
  Sender: FDA-Public Use
  Company Number: None

PATIENT
  Age: 58 Year
  Sex: Female
  Weight: 84.821 kg

DRUGS (1)
  1. RECLAST [Suspect]
     Indication: OSTEOPENIA
     Dosage: 5 MG/100 ML
     Route: 041
     Dates: start: 20111104, end: 20111104

REACTIONS (8)
  - ARTHRALGIA [None]
  - BODY TEMPERATURE INCREASED [None]
  - JOINT RANGE OF MOTION DECREASED [None]
  - MUSCLE SPASMS [None]
  - PAIN [None]
  - MOVEMENT DISORDER [None]
  - SCREAMING [None]
  - CRYING [None]
